FAERS Safety Report 16929417 (Version 1)
Quarter: 2019Q4

REPORT INFORMATION
  Report Type: Spontaneous
  Country: US (occurrence: US)
  Receive Date: 20191017
  Receipt Date: 20191017
  Transmission Date: 20200122
  Serious: No
  Sender: FDA-Public Use
  Company Number: US-BAYER-2019-183689

PATIENT
  Age: 43 Year
  Sex: Male

DRUGS (1)
  1. GADAVIST [Suspect]
     Active Substance: GADOBUTROL
     Indication: MAGNETIC RESONANCE IMAGING
     Dosage: 0.1 ML/KG, ONCE
     Route: 042
     Dates: start: 20191001

REACTIONS (3)
  - Eye pruritus [None]
  - Swollen tongue [None]
  - Rash [None]

NARRATIVE: CASE EVENT DATE: 20191001
